FAERS Safety Report 24980505 (Version 1)
Quarter: 2025Q1

REPORT INFORMATION
  Report Type: Spontaneous
  Country: US (occurrence: US)
  Receive Date: 20250218
  Receipt Date: 20250218
  Transmission Date: 20250409
  Serious: Yes (Other)
  Sender: 3M
  Company Number: US-3MMEDICAL-2025-US-007619

PATIENT
  Age: 52 Year
  Sex: Male

DRUGS (1)
  1. SOLUPREP [Suspect]
     Active Substance: CHLORHEXIDINE GLUCONATE\ISOPROPYL ALCOHOL
     Indication: Preoperative care
     Route: 061
     Dates: start: 20241216, end: 20241216

REACTIONS (1)
  - Skin irritation [Recovered/Resolved]

NARRATIVE: CASE EVENT DATE: 20241216
